FAERS Safety Report 7340933-X (Version None)
Quarter: 2011Q1

REPORT INFORMATION
  Report Type: 
  Country: None (occurrence: None)
  Receive Date: 20110309
  Receipt Date: 20100628
  Transmission Date: 20110831
  Serious: No
  Sender: FDA-Public Use
  Company Number: US-ABBOTT-10P-163-0654111-00

PATIENT
  Age: 31 Year
  Sex: Female
  Weight: 88.53 kg

DRUGS (9)
  1. LUPRON DEPOT [Suspect]
     Indication: ENDOMETRIOSIS
     Route: 050
     Dates: start: 20100401, end: 20100501
  2. ADD BACK THERAPY [Suspect]
     Indication: PROPHYLAXIS
     Route: 048
     Dates: start: 20100401
  3. ZYRTEC [Concomitant]
     Indication: SEASONAL ALLERGY
  4. MULTI-VITAMIN [Concomitant]
     Indication: VITAMIN SUPPLEMENTATION
  5. LUPRON DEPOT [Suspect]
     Indication: UTERINE SPASM
  6. LUPRON DEPOT [Suspect]
     Indication: UTERINE SPASM
  7. ADD BACK THERAPY [Suspect]
     Indication: ADVERSE DRUG REACTION
  8. CALCIUM [Concomitant]
     Indication: MINERAL SUPPLEMENTATION
     Dates: start: 20100401
  9. LUPRON DEPOT [Suspect]
     Indication: ENDOMETRIOSIS
     Route: 050
     Dates: start: 20100501

REACTIONS (5)
  - WEIGHT INCREASED [None]
  - IRRITABILITY [None]
  - UTERINE SPASM [None]
  - HEADACHE [None]
  - MOOD SWINGS [None]
